FAERS Safety Report 7747698-8 (Version None)
Quarter: 2011Q3

REPORT INFORMATION
  Report Type: 
  Country: None (occurrence: None)
  Receive Date: 20110913
  Receipt Date: 20110909
  Transmission Date: 20111222
  Serious: Yes (Death, Hospitalization)
  Sender: FDA-Public Use
  Company Number: US-ELI_LILLY_AND_COMPANY-US201109002541

PATIENT
  Sex: Male

DRUGS (3)
  1. HUMALOG [Suspect]
     Indication: TYPE 1 DIABETES MELLITUS
  2. LANTUS [Concomitant]
     Dosage: UNK
  3. HUMULIN N [Suspect]
     Indication: TYPE 1 DIABETES MELLITUS

REACTIONS (4)
  - DEATH [None]
  - DIABETIC COMPLICATION [None]
  - DIALYSIS [None]
  - MALAISE [None]
